FAERS Safety Report 24128191 (Version 1)
Quarter: 2024Q3

REPORT INFORMATION
  Report Type: Spontaneous
  Country: US (occurrence: US)
  Receive Date: 20240723
  Receipt Date: 20240723
  Transmission Date: 20241016
  Serious: Yes (Other)
  Sender: AMGEN
  Company Number: US-AMGEN-USASP2024141856

PATIENT

DRUGS (4)
  1. CARFILZOMIB [Suspect]
     Active Substance: CARFILZOMIB
     Indication: Plasma cell myeloma
     Dosage: UNK  20/36 MG/M2 ON DAYS 1, 2, 8, 9, 15, 16
     Route: 042
  2. LENALIDOMIDE [Suspect]
     Active Substance: LENALIDOMIDE
     Indication: Plasma cell myeloma
     Dosage: UNK  25 MG DAYS 1-21
     Route: 048
  3. DEXAMETHASONE [Suspect]
     Active Substance: DEXAMETHASONE
     Indication: Plasma cell myeloma
     Dosage: UNK  LV/ORAL 20/10 MG ON DAYS 1, 2, 8, 9, 15, 16, 22,
     Route: 042
  4. DEXAMETHASONE [Suspect]
     Active Substance: DEXAMETHASONE
     Dosage: UNK  LWORAL 20/10 MG ON DAYS 1, 2, 8, 9, 15, 16, 22,23
     Route: 048

REACTIONS (10)
  - Syncope [Unknown]
  - Hypophosphataemia [Unknown]
  - Thrombocytopenia [Unknown]
  - Cardiac failure congestive [Unknown]
  - Lymphopenia [Unknown]
  - Alanine aminotransferase increased [Unknown]
  - Fatigue [Unknown]
  - Anxiety [Unknown]
  - Rash [Unknown]
  - Therapy partial responder [Unknown]
